FAERS Safety Report 20632607 (Version 1)
Quarter: 2022Q1

REPORT INFORMATION
  Report Type: Spontaneous
  Country: US (occurrence: None)
  Receive Date: 20220324
  Receipt Date: 20220324
  Transmission Date: 20220423
  Serious: Yes (Hospitalization)
  Sender: FDA-Public Use
  Company Number: None

PATIENT
  Age: 72 Year
  Sex: Female
  Weight: 106.0 kg

DRUGS (6)
  1. INLYTA [Suspect]
     Active Substance: AXITINIB
     Indication: Renal cancer
     Dosage: FREQUENCY : TWICE A DAY;?
     Route: 048
     Dates: start: 20210918, end: 20220317
  2. AQAPHOR [Concomitant]
  3. LEVOTHYROXINE [Concomitant]
     Active Substance: LEVOTHYROXINE
  4. LOSARTAN [Concomitant]
     Active Substance: LOSARTAN
  5. OMEPRAZOLE [Concomitant]
     Active Substance: OMEPRAZOLE
  6. OXYCODONE [Concomitant]
     Active Substance: OXYCODONE

REACTIONS (3)
  - Dehydration [None]
  - Blister [None]
  - Therapy interrupted [None]

NARRATIVE: CASE EVENT DATE: 20220318
